FAERS Safety Report 10073192 (Version 3)
Quarter: 2014Q2

REPORT INFORMATION
  Report Type: Report from Study
  Country: BR (occurrence: BR)
  Receive Date: 20140411
  Receipt Date: 20140414
  Transmission Date: 20141212
  Serious: Yes (Hospitalization, Other)
  Sender: FDA-Public Use
  Company Number: PHHY2013BR108589

PATIENT
  Age: 66 Year
  Sex: Female

DRUGS (6)
  1. FORASEQ [Suspect]
     Indication: BRONCHITIS
     Dosage: 2 DF, QD (1 GROUP OF CAPSULES IN THE)
     Route: 055
  2. FORASEQ [Suspect]
     Indication: CHRONIC OBSTRUCTIVE PULMONARY DISEASE
     Dosage: UNK UKN, UNK
     Dates: end: 20140403
  3. PREDNISON [Concomitant]
     Indication: BRONCHITIS
     Dosage: 20 MG, UNK
  4. PREDNISON [Concomitant]
     Indication: CHRONIC OBSTRUCTIVE PULMONARY DISEASE
  5. TRIDIL [Concomitant]
     Indication: BRONCHITIS
     Dosage: 500 MG, TID
  6. TRIDIL [Concomitant]
     Indication: CHRONIC OBSTRUCTIVE PULMONARY DISEASE

REACTIONS (5)
  - Pneumonia [Recovered/Resolved]
  - Bronchitis [Unknown]
  - Chronic obstructive pulmonary disease [Unknown]
  - Dyspnoea [Unknown]
  - Drug ineffective [Unknown]
